FAERS Safety Report 19984997 (Version 4)
Quarter: 2022Q1

REPORT INFORMATION
  Report Type: Spontaneous
  Country: JP (occurrence: JP)
  Receive Date: 20211022
  Receipt Date: 20220222
  Transmission Date: 20220423
  Serious: Yes (Hospitalization, Other)
  Sender: FDA-Public Use
  Company Number: JP-OTSUKA-2021_032240

PATIENT
  Age: 77 Year
  Sex: Female

DRUGS (8)
  1. REXULTI [Suspect]
     Active Substance: BREXPIPRAZOLE
     Indication: Psychotic symptom
     Dosage: 2 MG, QD
     Route: 048
     Dates: start: 20210702, end: 20210830
  2. REXULTI [Suspect]
     Active Substance: BREXPIPRAZOLE
     Indication: Psychotic symptom
     Dosage: 1 MG, QD
     Route: 048
     Dates: start: 20210625, end: 20210701
  3. QUETIAPINE FUMARATE [Suspect]
     Active Substance: QUETIAPINE FUMARATE
     Indication: Product used for unknown indication
     Dosage: 25 MG, QD
     Route: 048
     Dates: start: 20210813, end: 20210830
  4. QUETIAPINE FUMARATE [Suspect]
     Active Substance: QUETIAPINE FUMARATE
     Dosage: 100 MG, QD
     Route: 048
     Dates: start: 20210612, end: 20210708
  5. QUETIAPINE FUMARATE [Suspect]
     Active Substance: QUETIAPINE FUMARATE
     Dosage: 50 MG, QD
     Route: 048
     Dates: start: 20210709, end: 20210812
  6. CANDESARTAN CILEXETIL [Concomitant]
     Active Substance: CANDESARTAN CILEXETIL
     Indication: Product used for unknown indication
     Dosage: 8 MG, QD
     Route: 048
     Dates: start: 20210814, end: 20210830
  7. TANDOSPIRONE CITRATE [Concomitant]
     Active Substance: TANDOSPIRONE CITRATE
     Indication: Product used for unknown indication
     Dosage: 20 MG, QD
     Route: 048
     Dates: start: 20210813, end: 20210830
  8. AMLODIPINE BESYLATE [Concomitant]
     Active Substance: AMLODIPINE BESYLATE
     Indication: Product used for unknown indication
     Dosage: 5 MG, QD
     Route: 048
     Dates: start: 20210709, end: 20210813

REACTIONS (5)
  - Neuroleptic malignant syndrome [Recovered/Resolved]
  - Fluid intake reduced [Unknown]
  - Dehydration [Unknown]
  - Off label use [Unknown]
  - Drug level increased [Unknown]

NARRATIVE: CASE EVENT DATE: 20210821
